FAERS Safety Report 23696659 (Version 1)
Quarter: 2024Q2

REPORT INFORMATION
  Report Type: Spontaneous
  Country: CA (occurrence: CA)
  Receive Date: 20240402
  Receipt Date: 20240402
  Transmission Date: 20240716
  Serious: Yes (Congenital Anomaly, Other)
  Sender: FDA-Public Use
  Company Number: CA-GTI-000205

PATIENT

DRUGS (7)
  1. PREDNISONE [Suspect]
     Active Substance: PREDNISONE
     Indication: Foetal exposure during pregnancy
     Route: 064
  2. OMALIZUMAB [Suspect]
     Active Substance: OMALIZUMAB
     Indication: Foetal exposure during pregnancy
     Route: 064
  3. DUPILUMAB [Suspect]
     Active Substance: DUPILUMAB
     Indication: Foetal exposure during pregnancy
     Route: 064
  4. MIRTAZAPINE [Concomitant]
     Active Substance: MIRTAZAPINE
     Indication: Foetal exposure during pregnancy
     Route: 064
  5. FLUTICASONE FUROATE [Concomitant]
     Active Substance: FLUTICASONE FUROATE
     Indication: Foetal exposure during pregnancy
     Route: 064
  6. TIOTROPIUM [Concomitant]
     Active Substance: TIOTROPIUM
     Indication: Foetal exposure during pregnancy
     Route: 064
  7. VILANTEROL [Concomitant]
     Active Substance: VILANTEROL
     Indication: Foetal exposure during pregnancy
     Route: 064

REACTIONS (6)
  - Cleft palate [Unknown]
  - Hypopituitarism [Unknown]
  - Secondary hypogonadism [Unknown]
  - Pharyngeal disorder [Unknown]
  - Foetal exposure during pregnancy [Unknown]
  - Premature baby [Unknown]
